FAERS Safety Report 23039146 (Version 1)
Quarter: 2023Q4

REPORT INFORMATION
  Report Type: Spontaneous
  Country: GB (occurrence: GB)
  Receive Date: 20231006
  Receipt Date: 20231006
  Transmission Date: 20240109
  Serious: Yes (Hospitalization, Other)
  Sender: FDA-Public Use
  Company Number: GB-MHRA-MED-202309251506073400-RTQJW

PATIENT
  Age: 52 Year
  Sex: Female
  Weight: 100 kg

DRUGS (2)
  1. MIRENA [Suspect]
     Active Substance: LEVONORGESTREL
     Indication: Adenomyosis
     Dosage: 20?G/DAY
     Route: 015
     Dates: start: 20170305, end: 20230620
  2. ALBUTEROL [Concomitant]
     Active Substance: ALBUTEROL
     Indication: Asthma
     Dates: start: 19980304

REACTIONS (6)
  - Migraine [Recovered/Resolved]
  - Syncope [None]
  - Headache [Recovering/Resolving]
  - Dizziness [None]
  - Vomiting [Recovering/Resolving]
  - Withdrawal syndrome [None]

NARRATIVE: CASE EVENT DATE: 20230622
